FAERS Safety Report 15802970 (Version 2)
Quarter: 2019Q1

REPORT INFORMATION
  Report Type: Spontaneous
  Country: SE (occurrence: SE)
  Receive Date: 20190109
  Receipt Date: 20190125
  Transmission Date: 20190417
  Serious: No
  Sender: FDA-Public Use
  Company Number: SE-BAYER-2019-006394

PATIENT
  Age: 20 Year
  Sex: Female

DRUGS (1)
  1. JAYDESS [Suspect]
     Active Substance: LEVONORGESTREL
     Dosage: 114 MCG/24HR, CONT
     Route: 015
     Dates: start: 201804

REACTIONS (1)
  - Genital candidiasis [Recovered/Resolved]

NARRATIVE: CASE EVENT DATE: 201805
